FAERS Safety Report 18877578 (Version 1)
Quarter: 2021Q1

REPORT INFORMATION
  Report Type: Spontaneous
  Country: US (occurrence: US)
  Receive Date: 20210210
  Receipt Date: 20210210
  Transmission Date: 20210420
  Serious: Yes (Hospitalization, Disabling)
  Sender: FDA-Public Use
  Company Number: None

PATIENT
  Age: 30 Year
  Sex: Female
  Weight: 58.06 kg

DRUGS (1)
  1. METHOTREXATE. [Suspect]
     Active Substance: METHOTREXATE
     Indication: FALL
     Dosage: ?          OTHER FREQUENCY:ONCE;?
     Route: 039
     Dates: start: 20200325, end: 20200325

REACTIONS (3)
  - Polyneuropathy [None]
  - Myelopathy [None]
  - Hypoaesthesia [None]

NARRATIVE: CASE EVENT DATE: 20200511
